FAERS Safety Report 5899911-X (Version None)
Quarter: 2008Q3

REPORT INFORMATION
  Report Type: 
  Country: None (occurrence: None)
  Receive Date: 20080926
  Receipt Date: 20080919
  Transmission Date: 20090109
  Serious: Yes (Hospitalization)
  Sender: FDA-Public Use
  Company Number: A0733892A

PATIENT
  Age: 62 Year
  Sex: Male
  Weight: 93.2 kg

DRUGS (11)
  1. AVANDIA [Suspect]
     Dosage: 8MG PER DAY
     Route: 048
     Dates: start: 19990101, end: 20020509
  2. AMITRIPTYLINE HCL [Concomitant]
  3. ATENOLOL [Concomitant]
     Dates: start: 20010101
  4. FUROSEMIDE [Concomitant]
  5. NPH INSULIN, BEEF [Concomitant]
  6. REGULAR INSULIN [Concomitant]
  7. MINOXIDIL [Concomitant]
  8. NIFEDIPINE [Concomitant]
  9. RABEPRAZOLE SODIUM [Concomitant]
  10. SIMVASTATIN [Concomitant]
  11. ISOSORBIDE [Concomitant]
     Dates: start: 20010101

REACTIONS (7)
  - ACUTE MYOCARDIAL INFARCTION [None]
  - CARDIAC ARREST [None]
  - CARDIAC FAILURE CONGESTIVE [None]
  - CORONARY ARTERY DISEASE [None]
  - HYPERTENSION [None]
  - PULSE ABSENT [None]
  - RENAL FAILURE [None]
